FAERS Safety Report 9412191 (Version 2)
Quarter: 2013Q2

REPORT INFORMATION
  Report Type: Spontaneous
  Country: JP (occurrence: None)
  Receive Date: 20130426
  Receipt Date: 20130426
  Transmission Date: 20140414
  Serious: Yes (Hospitalization, Other)
  Sender: FDA-Public Use
  Company Number: DSJ-2013-07394

PATIENT
  Age: 61 Year
  Sex: Female
  Weight: 80 kg

DRUGS (8)
  1. OLMETEC [Suspect]
     Indication: PROPHYLAXIS
     Route: 048
     Dates: start: 20130117, end: 20130307
  2. PEGINTRON [Suspect]
     Indication: CHRONIC HEPATITIS C
     Dosage: ONE DOSAGE ADMINISTERED ONCE PER WEEK.
     Route: 058
     Dates: start: 20130117, end: 20130206
  3. REBETOL (RIBAVIRIN) [Suspect]
     Indication: CHRONIC HEPATITIS C
     Route: 048
     Dates: start: 20130117, end: 20130206
  4. TELAVIC [Suspect]
     Indication: CHRONIC HEPATITIS C
     Route: 048
     Dates: start: 20130117, end: 20130307
  5. ALOSITOL [Suspect]
     Indication: PROPHYLAXIS
     Route: 048
     Dates: start: 20130117, end: 20130307
  6. LAXOBERON [Suspect]
     Indication: CONSTIPATION
     Route: 048
     Dates: start: 20130123, end: 20130307
  7. MAGMITT [Suspect]
     Indication: CONSTIPATION
     Route: 048
     Dates: start: 20130127, end: 20130203
  8. MYSER (DIFUPREDNATE)(OINTMENT)(DIFLUPREDNATE) [Concomitant]

REACTIONS (3)
  - Drug eruption [None]
  - Lymphadenopathy [None]
  - Eosinophilia [None]
